FAERS Safety Report 5258431-6 (Version None)
Quarter: 2007Q1

REPORT INFORMATION
  Report Type: 
  Country: None (occurrence: None)
  Receive Date: 20061217
  Receipt Date: 20060719
  Transmission Date: 20070707
  Serious: Yes (Other)
  Sender: FDA-Public Use
  Company Number: US-JNJFOC-20060704052

PATIENT
  Age: 33 Year
  Sex: Female
  Weight: 131.5431 kg

DRUGS (1)
  1. LEVAQUIN [Suspect]
     Indication: BRONCHITIS
     Dosage: 500 MG, 1 IN  1 DAY
     Dates: start: 20060601, end: 20060607

REACTIONS (2)
  - ARTHRALGIA [None]
  - OSTEOARTHRITIS [None]
